FAERS Safety Report 7635053-0 (Version None)
Quarter: 2011Q3

REPORT INFORMATION
  Report Type: 
  Country: None (occurrence: None)
  Receive Date: 20110726
  Receipt Date: 20110718
  Transmission Date: 20111222
  Serious: Yes (Other)
  Sender: FDA-Public Use
  Company Number: US-JNJFOC-20110604930

PATIENT
  Sex: Female

DRUGS (6)
  1. BENICAR [Concomitant]
     Indication: BLOOD PRESSURE
     Dates: start: 20040101, end: 20060101
  2. LEVAQUIN [Suspect]
     Indication: BACTERIAL INFECTION
     Route: 048
  3. LEVAQUIN [Suspect]
     Indication: BRONCHITIS
     Route: 048
  4. LESCOL XL [Concomitant]
     Indication: BLOOD CHOLESTEROL
     Dates: start: 20040101
  5. TRICOR [Concomitant]
     Indication: BLOOD CHOLESTEROL
     Dates: start: 20040101
  6. PREDNISONE TAB [Suspect]
     Indication: UPPER RESPIRATORY TRACT INFECTION
     Route: 065

REACTIONS (5)
  - DEPRESSION [None]
  - TENDON RUPTURE [None]
  - TENOSYNOVITIS [None]
  - DEEP VEIN THROMBOSIS [None]
  - PLANTAR FASCIITIS [None]
